FAERS Safety Report 6472746-5 (Version None)
Quarter: 2009Q4

REPORT INFORMATION
  Report Type: 
  Country: None (occurrence: None)
  Receive Date: 20091203
  Receipt Date: 20081215
  Transmission Date: 20100525
  Serious: No
  Sender: FDA-Public Use
  Company Number: US-AMGEN-KDL323950

PATIENT
  Sex: Female

DRUGS (2)
  1. ENBREL [Suspect]
     Indication: PSORIATIC ARTHROPATHY
     Route: 058
     Dates: start: 20080222
  2. ENBREL [Suspect]
     Indication: PUSTULAR PSORIASIS

REACTIONS (2)
  - NASOPHARYNGITIS [None]
  - PUSTULAR PSORIASIS [None]
